FAERS Safety Report 6886921-9 (Version None)
Quarter: 2010Q3

REPORT INFORMATION
  Report Type: 
  Country: None (occurrence: None)
  Receive Date: 20100730
  Receipt Date: 20100726
  Transmission Date: 20110219
  Serious: Yes (Hospitalization)
  Sender: FDA-Public Use
  Company Number: JP-BAYER-201011793BYL

PATIENT
  Age: 53 Year
  Sex: Male

DRUGS (11)
  1. NEXAVAR [Suspect]
     Indication: RENAL CELL CARCINOMA
     Dosage: UNIT DOSE: 200 MG
     Route: 048
     Dates: start: 20090930, end: 20091111
  2. NEXAVAR [Suspect]
     Dosage: UNIT DOSE: 200 MG
     Route: 048
     Dates: start: 20091217, end: 20100202
  3. NEXAVAR [Suspect]
     Dosage: UNIT DOSE: 200 MG
     Route: 048
     Dates: start: 20100302, end: 20100414
  4. MUCOSTA [Concomitant]
     Route: 048
     Dates: start: 20090930
  5. LOXONIN [Concomitant]
     Route: 048
     Dates: start: 20090930
  6. OXYCONTIN [Concomitant]
     Route: 048
     Dates: start: 20090930
  7. OXINORM [Concomitant]
     Route: 048
     Dates: start: 20090930
  8. PANTOSIN [Concomitant]
     Route: 048
     Dates: start: 20100205
  9. MAGMITT [Concomitant]
     Route: 048
     Dates: start: 20100205
  10. METHYCOBAL [Concomitant]
     Route: 048
     Dates: start: 20100205
  11. DUROTEP [Concomitant]
     Route: 062
     Dates: start: 20100325

REACTIONS (3)
  - BONE MARROW FAILURE [None]
  - DEPRESSION [None]
  - PALMAR-PLANTAR ERYTHRODYSAESTHESIA SYNDROME [None]
